FAERS Safety Report 9834170 (Version 4)
Quarter: 2014Q3

REPORT INFORMATION
  Report Type: Spontaneous
  Country: US (occurrence: US)
  Receive Date: 20140122
  Receipt Date: 20140807
  Transmission Date: 20150326
  Serious: Yes (Disabling, Other)
  Sender: FDA-Public Use
  Company Number: US-009507513-1401USA006311

PATIENT
  Sex: Male

DRUGS (2)
  1. FINASTERIDE. [Suspect]
     Active Substance: FINASTERIDE
     Indication: ANDROGENETIC ALOPECIA
     Dosage: 5 MG QUARTERED, UNK
     Route: 048
     Dates: start: 20110913
  2. PROPECIA [Suspect]
     Active Substance: FINASTERIDE
     Indication: ANDROGENETIC ALOPECIA
     Dosage: 1 MG, QD
     Route: 048
     Dates: start: 20010714, end: 20110910

REACTIONS (12)
  - Surgery [Unknown]
  - Ligament sprain [Unknown]
  - Adverse event [Unknown]
  - Glaucoma [Unknown]
  - Erectile dysfunction [Not Recovered/Not Resolved]
  - Pain [Unknown]
  - Wrong technique in drug usage process [Unknown]
  - Laceration [Unknown]
  - Sexual dysfunction [Not Recovered/Not Resolved]
  - Basal cell carcinoma [Unknown]
  - Hypertension [Unknown]
  - Gastrooesophageal reflux disease [Unknown]

NARRATIVE: CASE EVENT DATE: 2004
